FAERS Safety Report 6968436-2 (Version None)
Quarter: 2010Q3

REPORT INFORMATION
  Report Type: 
  Country: None (occurrence: None)
  Receive Date: 20100907
  Receipt Date: 20100825
  Transmission Date: 20110219
  Serious: Yes (Other)
  Sender: FDA-Public Use
  Company Number: PHHY2010NL50230

PATIENT
  Sex: Male

DRUGS (11)
  1. ZOMETA [Suspect]
     Dosage: 4 MG/5 ML
     Route: 042
     Dates: start: 20100409
  2. ZOMETA [Suspect]
     Dosage: 4 MG/5 ML
     Dates: start: 20100506
  3. ZOMETA [Suspect]
     Dosage: 4 MG/5 ML
     Dates: start: 20100603
  4. ZOMETA [Suspect]
     Dosage: 4 MG/5 ML
     Dates: start: 20100701
  5. ZOMETA [Suspect]
     Dosage: 4 MG/5 ML
     Dates: start: 20100729
  6. ZOMETA [Suspect]
     Dosage: 4 MG/5 ML
     Dates: start: 20100825
  7. METOPROLOL TARTRATE [Concomitant]
     Dosage: UNK
  8. BICALUTAMIDE [Concomitant]
     Dosage: UNK
  9. LYRICA [Concomitant]
     Dosage: UNK
  10. PERINDOPRIL [Concomitant]
     Dosage: 4 MG
  11. PERINDOPRIL [Concomitant]
     Dosage: 2 MG

REACTIONS (5)
  - ARTHRALGIA [None]
  - BACK PAIN [None]
  - DIZZINESS [None]
  - METASTASES TO BONE [None]
  - OEDEMA PERIPHERAL [None]
